FAERS Safety Report 8574113-7 (Version None)
Quarter: 2012Q3

REPORT INFORMATION
  Report Type: 
  Country: None (occurrence: None)
  Receive Date: 20120806
  Receipt Date: 20120802
  Transmission Date: 20120928
  Serious: Yes (Hospitalization)
  Sender: FDA-Public Use
  Company Number: PHHY2012GB060438

PATIENT
  Age: 69 Year
  Sex: Female
  Weight: 64 kg

DRUGS (11)
  1. RAMIPRIL [Concomitant]
     Dates: start: 20080201
  2. BENDROFLUMETHIAZIDE [Concomitant]
     Dates: start: 20050420
  3. LANSOPRAZOLE [Concomitant]
     Dates: start: 20080627
  4. METOCLOPRAMIDE [Suspect]
     Dosage: 10 MG, UNK
     Route: 048
     Dates: start: 20080806, end: 20110901
  5. TETRABENAZINE [Suspect]
     Dosage: 4.5 MG, UNK
     Dates: start: 20111128, end: 20120320
  6. ACRIVASTINE [Concomitant]
     Dates: start: 20110728
  7. BECONASE [Concomitant]
     Dates: start: 20071120
  8. PAROXETINE HCL [Suspect]
     Indication: DEPRESSION
     Dosage: 20 MG, BID
     Route: 048
     Dates: start: 19970707, end: 20111206
  9. PAROXETINE HCL [Suspect]
     Dosage: 40 MG
     Dates: start: 20111013, end: 20111206
  10. ATORVASTATIN [Concomitant]
     Dates: start: 20031114
  11. FENOFIBRATE [Concomitant]
     Dates: start: 20030520

REACTIONS (5)
  - HALLUCINATION [None]
  - AKATHISIA [None]
  - FALL [None]
  - EATING DISORDER [None]
  - MUSCLE CONTRACTIONS INVOLUNTARY [None]
